FAERS Safety Report 10657378 (Version 2)
Quarter: 2015Q1

REPORT INFORMATION
  Report Type: Spontaneous
  Country: GB (occurrence: GB)
  Receive Date: 20141217
  Receipt Date: 20150212
  Transmission Date: 20150720
  Serious: Yes (Other)
  Sender: FDA-Public Use
  Company Number: PHFR2014GB008416

PATIENT
  Sex: Female
  Weight: 2.66 kg

DRUGS (4)
  1. CLOZARIL [Suspect]
     Active Substance: CLOZAPINE
     Dosage: UNK (MATERNAL DOSE: 425 MG QD (200 MG IN THE MORNING AND 225 MG AT NIGHT))
     Route: 064
     Dates: start: 20140714
  2. CLOZARIL [Suspect]
     Active Substance: CLOZAPINE
     Indication: SCHIZOAFFECTIVE DISORDER
     Dosage: UNK (300 MG  MATERNAL DOSE)
     Route: 064
  3. CLOZARIL [Suspect]
     Active Substance: CLOZAPINE
     Indication: SCHIZOPHRENIA
     Dosage: UNK (325 MG MATERNAL DOSE)
     Route: 064
     Dates: start: 20130620
  4. CLOZARIL [Suspect]
     Active Substance: CLOZAPINE
     Dosage: UNK (MATERNAL DOSE: 375 MG QD (175 MG IN THE MORNING AND 200 MG AT NIGHT))
     Route: 064

REACTIONS (2)
  - Premature baby [Unknown]
  - Foetal exposure during pregnancy [Unknown]
